FAERS Safety Report 12010478 (Version 1)
Quarter: 2016Q1

REPORT INFORMATION
  Report Type: Spontaneous
  Country: US (occurrence: US)
  Receive Date: 20160205
  Receipt Date: 20160205
  Transmission Date: 20160526
  Serious: No
  Sender: FDA-Public Use
  Company Number: US-FRI-1000080959

PATIENT
  Age: 64 Year
  Sex: Female

DRUGS (3)
  1. FETZIMA [Suspect]
     Active Substance: LEVOMILNACIPRAN HYDROCHLORIDE
     Indication: DEPRESSION
     Dosage: 20MG
     Route: 048
     Dates: start: 20151113
  2. FETZIMA [Suspect]
     Active Substance: LEVOMILNACIPRAN HYDROCHLORIDE
     Dosage: 40MG
     Route: 048
     Dates: start: 20150916, end: 20151113
  3. PREDNISONE. [Concomitant]
     Active Substance: PREDNISONE
     Dosage: 50MG
     Route: 048

REACTIONS (7)
  - Insomnia [Recovering/Resolving]
  - Irritability [Recovering/Resolving]
  - Blood pressure systolic increased [Unknown]
  - Dyspepsia [Recovering/Resolving]
  - Constipation [Recovering/Resolving]
  - Palpitations [Recovering/Resolving]
  - Energy increased [Recovering/Resolving]

NARRATIVE: CASE EVENT DATE: 201510
